FAERS Safety Report 18048942 (Version 1)
Quarter: 2020Q3

REPORT INFORMATION
  Report Type: Report from Study
  Country: GT (occurrence: GT)
  Receive Date: 20200721
  Receipt Date: 20200721
  Transmission Date: 20201103
  Serious: Yes (Other)
  Sender: FDA-Public Use
  Company Number: NVSC2020GT203202

PATIENT
  Age: 71 Year
  Sex: Female

DRUGS (1)
  1. VYMADA [Suspect]
     Active Substance: SACUBITRIL\VALSARTAN
     Indication: PRODUCT USED FOR UNKNOWN INDICATION
     Dosage: 200 MG (SPLITTED INTO 4)
     Route: 065

REACTIONS (4)
  - Arrhythmia [Unknown]
  - Off label use [Unknown]
  - Wrong technique in product usage process [Unknown]
  - Product prescribing error [Unknown]
